FAERS Safety Report 15517833 (Version 1)
Quarter: 2018Q4

REPORT INFORMATION
  Report Type: Spontaneous
  Country: US (occurrence: US)
  Receive Date: 20181011
  Receipt Date: 20181011
  Transmission Date: 20190205
  Serious: Yes (Hospitalization)
  Sender: FDA-Public Use
  Company Number: None

PATIENT
  Age: 30 Month
  Sex: Male
  Weight: 5.94 kg

DRUGS (5)
  1. DOXORUBICIN HYDROCHLORIDE. [Suspect]
     Active Substance: DOXORUBICIN HYDROCHLORIDE
     Dates: end: 20180915
  2. VINCRISTINE SULFATE. [Suspect]
     Active Substance: VINCRISTINE SULFATE
     Dates: end: 20180928
  3. CISPLATIN. [Suspect]
     Active Substance: CISPLATIN
     Dates: end: 20180914
  4. 5-FLUOROURACIL (5-FU) [Suspect]
     Active Substance: FLUOROURACIL
     Dates: end: 20180914
  5. ZINECARD [Suspect]
     Active Substance: DEXRAZOXANE HYDROCHLORIDE
     Dates: end: 20180915

REACTIONS (13)
  - Hyponatraemia [None]
  - Inappropriate antidiuretic hormone secretion [None]
  - Catheter site erythema [None]
  - Wound infection pseudomonas [None]
  - Weight decreased [None]
  - Serratia test positive [None]
  - Electrolyte imbalance [None]
  - Hypophagia [None]
  - Catheter site warmth [None]
  - Catheter site pain [None]
  - Catheter site discharge [None]
  - Wound infection bacterial [None]
  - Staphylococcus test positive [None]

NARRATIVE: CASE EVENT DATE: 20180928
